FAERS Safety Report 16211266 (Version 2)
Quarter: 2019Q2

REPORT INFORMATION
  Report Type: Report from Study
  Country: US (occurrence: US)
  Receive Date: 20190418
  Receipt Date: 20190503
  Transmission Date: 20190711
  Serious: Yes (Other)
  Sender: FDA-Public Use
  Company Number: US-ROCHE-2305230

PATIENT
  Age: 11 Year
  Sex: Male
  Weight: 33.1 kg

DRUGS (12)
  1. CELLCEPT [Suspect]
     Active Substance: MYCOPHENOLATE MOFETIL\MYCOPHENOLATE MOFETIL HYDROCHLORIDE
     Indication: RENAL TRANSPLANT
     Dosage: 200MG/ML
     Route: 048
  2. AMLODIPINE [Concomitant]
     Active Substance: AMLODIPINE BESYLATE
     Route: 048
  3. FERROUS GLUCONATE [Concomitant]
     Active Substance: FERROUS GLUCONATE
     Route: 048
  4. ALBUTEROL SULFATE. [Concomitant]
     Active Substance: ALBUTEROL SULFATE
     Dosage: 2.5MG/3ML
     Route: 065
     Dates: start: 20131126
  5. CALCITRIOL. [Concomitant]
     Active Substance: CALCITRIOL
     Route: 048
  6. LIDOCAINE/PRILOCAINE [Concomitant]
     Active Substance: LIDOCAINE\PRILOCAINE
     Dosage: APPLY EXTERNALLY 1 HOUR PRIOR TO LAB WORK
     Route: 061
  7. CONCERTA [Concomitant]
     Active Substance: METHYLPHENIDATE HYDROCHLORIDE
     Route: 048
  8. PROAIR HFA [Concomitant]
     Active Substance: ALBUTEROL SULFATE
     Dosage: 90MCG/ACTUATION INHALE 2 PUFFS EVERY 4 HOURS
     Route: 065
  9. QVAR [Concomitant]
     Active Substance: BECLOMETHASONE DIPROPIONATE
     Dosage: 80MCG/ACTUATIONC INHALE 2 PUFFS BY INHALATION ROUTE
     Route: 065
  10. TACROLIMUS. [Concomitant]
     Active Substance: TACROLIMUS
     Route: 065
  11. RITUXAN [Suspect]
     Active Substance: RITUXIMAB
     Indication: PRODUCT USED FOR UNKNOWN INDICATION
     Route: 065
  12. BENADRYL [Concomitant]
     Active Substance: DIPHENHYDRAMINE HYDROCHLORIDE
     Indication: INSOMNIA
     Dosage: NIGHTLY
     Route: 065

REACTIONS (8)
  - Kidney transplant rejection [Unknown]
  - Failure to thrive [Unknown]
  - Renal failure [Unknown]
  - Renal hypertension [Unknown]
  - Pneumonia [Unknown]
  - Hypertension [Unknown]
  - Hyperparathyroidism [Unknown]
  - Anaemia [Unknown]

NARRATIVE: CASE EVENT DATE: 20170227
